FAERS Safety Report 24874615 (Version 1)
Quarter: 2025Q1

REPORT INFORMATION
  Report Type: Spontaneous
  Country: US (occurrence: None)
  Receive Date: 20250122
  Receipt Date: 20250122
  Transmission Date: 20250409
  Serious: Yes (Hospitalization)
  Sender: FDA-CTU
  Company Number: None

PATIENT
  Age: 56 Year
  Sex: Male

DRUGS (4)
  1. EVEROLIMUS [Suspect]
     Active Substance: EVEROLIMUS
     Indication: Renal transplant
     Dosage: TAKE 1 TABLET (0.75 MG TOTAL) BY MOUTH EVERY 12 (TWELVE) HOURSS
     Route: 048
     Dates: start: 20230623
  2. MYCOPHENOLATE MOFETIL [Suspect]
     Active Substance: MYCOPHENOLATE MOFETIL
     Indication: Renal transplant
     Dosage: TAKE 2 TABLETS (1,000MG TOTAL BY MOUTH 2 TIMES DAILY
     Route: 048
     Dates: start: 20200319
  3. CALCIUM 500 TAB +D [Concomitant]
  4. MYCOPHENOLATE MOFETIL [Concomitant]
     Active Substance: MYCOPHENOLATE MOFETIL

REACTIONS (1)
  - Disorientation [None]

NARRATIVE: CASE EVENT DATE: 20250101
